FAERS Safety Report 7270725-1 (Version None)
Quarter: 2011Q1

REPORT INFORMATION
  Report Type: 
  Country: None (occurrence: None)
  Receive Date: 20110202
  Receipt Date: 20110128
  Transmission Date: 20110831
  Serious: Yes (Hospitalization)
  Sender: FDA-Public Use
  Company Number: B0697146A

PATIENT
  Sex: Male

DRUGS (1)
  1. ROSIGLITAZONE MALEATE [Suspect]
     Route: 048

REACTIONS (4)
  - DIABETES MELLITUS INADEQUATE CONTROL [None]
  - GANGRENE [None]
  - ARTERIOSCLEROSIS [None]
  - RENAL FAILURE CHRONIC [None]
